FAERS Safety Report 8023904-X (Version None)
Quarter: 2012Q1

REPORT INFORMATION
  Report Type: 
  Country: None (occurrence: None)
  Receive Date: 20120103
  Receipt Date: 20120103
  Transmission Date: 20120608
  Serious: Yes (Life-Threatening, Hospitalization)
  Sender: FDA-Public Use
  Company Number: None

PATIENT
  Age: 53 Year
  Sex: Female
  Weight: 92.9874 kg

DRUGS (1)
  1. ENALAPRIL MALEATE [Suspect]
     Indication: HYPERTENSION
     Dosage: 1 PER DAY BY MOUTH
     Route: 048
     Dates: start: 20111213

REACTIONS (3)
  - BLOOD PRESSURE INCREASED [None]
  - CHILLS [None]
  - VOMITING [None]
